FAERS Safety Report 4436940-7 (Version None)
Quarter: 2004Q3

REPORT INFORMATION
  Report Type: 
  Country: None (occurrence: None)
  Receive Date: 20040726
  Receipt Date: 20040323
  Transmission Date: 20050211
  Serious: No
  Sender: FDA-Public Use
  Company Number: USA040362934

PATIENT
  Age: 52 Year
  Sex: Female
  Weight: 55 kg

DRUGS (8)
  1. FORTEO [Suspect]
     Indication: OSTEOPOROSIS
     Dosage: 20 UG/1 DAY
     Dates: start: 20031014, end: 20040320
  2. SYNTHROID [Concomitant]
  3. CALCIUM MAGNESIUM [Concomitant]
  4. CALCIUM COMPLEX [Concomitant]
  5. CALCIUM LACTATE [Concomitant]
  6. FLUOXETINE HYDROCHLORIDE [Concomitant]
  7. VITAMIN D [Concomitant]
  8. ALLERGY SHOT [Concomitant]

REACTIONS (7)
  - DIARRHOEA [None]
  - DIZZINESS [None]
  - FATIGUE [None]
  - FEELING ABNORMAL [None]
  - HEADACHE [None]
  - NAUSEA [None]
  - SUBCUTANEOUS NODULE [None]
